FAERS Safety Report 17157957 (Version 1)
Quarter: 2019Q4

REPORT INFORMATION
  Report Type: Spontaneous
  Country: US (occurrence: US)
  Receive Date: 20191216
  Receipt Date: 20191216
  Transmission Date: 20200122
  Serious: Yes (Other)
  Sender: FDA-Public Use
  Company Number: NVSC2019US040145

PATIENT

DRUGS (2)
  1. MAYZENT [Suspect]
     Active Substance: SIPONIMOD
     Indication: MULTIPLE SCLEROSIS
     Dosage: 2 MG, QD
     Route: 048
     Dates: start: 201909
  2. MAYZENT [Suspect]
     Active Substance: SIPONIMOD
     Dosage: 1 MG, QD
     Route: 048

REACTIONS (5)
  - Lymphopenia [Unknown]
  - Blood pressure increased [Unknown]
  - Peripheral swelling [Unknown]
  - White blood cell count decreased [Unknown]
  - Oedema [Unknown]

NARRATIVE: CASE EVENT DATE: 20191104
